FAERS Safety Report 22336002 (Version 1)
Quarter: 2023Q2

REPORT INFORMATION
  Report Type: Spontaneous
  Country: US (occurrence: None)
  Receive Date: 20230518
  Receipt Date: 20230518
  Transmission Date: 20230721
  Serious: No
  Sender: FDA-Public Use
  Company Number: US-ROCHE-3148874

PATIENT
  Sex: Female

DRUGS (9)
  1. ACTEMRA [Suspect]
     Active Substance: TOCILIZUMAB
     Indication: Giant cell arteritis
     Dosage: ACTEMRA PFS 162 MG09 ML SQ
     Route: 058
     Dates: start: 20210311
  2. ATORVASTATIN [Concomitant]
     Active Substance: ATORVASTATIN
  3. ATOVAQUONE [Concomitant]
     Active Substance: ATOVAQUONE
  4. ELIQUIS [Concomitant]
     Active Substance: APIXABAN
  5. ENOXAPARIN [Concomitant]
     Active Substance: ENOXAPARIN
  6. LEVOTHYROXINE [Concomitant]
     Active Substance: LEVOTHYROXINE
     Dosage: 125 MCG
  7. PAROXETINE HYDROCHLORIDE [Concomitant]
     Active Substance: PAROXETINE HYDROCHLORIDE
  8. PREDNISONE [Concomitant]
     Active Substance: PREDNISONE
  9. WARFARIN [Concomitant]
     Active Substance: WARFARIN

REACTIONS (1)
  - Infection [Unknown]
